FAERS Safety Report 10078911 (Version 2)
Quarter: 2014Q2

REPORT INFORMATION
  Report Type: Spontaneous
  Country: GB (occurrence: GB)
  Receive Date: 20140415
  Receipt Date: 20140507
  Transmission Date: 20141212
  Serious: Yes (Disabling, Other)
  Sender: FDA-Public Use
  Company Number: GB-009507513-1404GBR007397

PATIENT
  Age: 84 Year
  Sex: Female

DRUGS (1)
  1. NANDROLONE DECANOATE [Suspect]
     Indication: OSTEOPOROSIS
     Dosage: UNK
     Dates: end: 2011

REACTIONS (6)
  - Disability [Not Recovered/Not Resolved]
  - Hip arthroplasty [Not Recovered/Not Resolved]
  - Arthritis [Not Recovered/Not Resolved]
  - Pain in extremity [Not Recovered/Not Resolved]
  - Cyst [Not Recovered/Not Resolved]
  - Cyst removal [Not Recovered/Not Resolved]
